FAERS Safety Report 8465198-7 (Version None)
Quarter: 2012Q2

REPORT INFORMATION
  Report Type: 
  Country: None (occurrence: None)
  Receive Date: 20120626
  Receipt Date: 20120619
  Transmission Date: 20120825
  Serious: Yes (Other)
  Sender: FDA-Public Use
  Company Number: PHHY2012BR032486

PATIENT
  Sex: Female

DRUGS (6)
  1. SOMALGIN [Concomitant]
     Indication: CIRCULATING ANTICOAGULANT
     Dosage: 1 DF
     Route: 048
     Dates: start: 20010101
  2. ATENOLOL [Concomitant]
     Indication: BLOOD PRESSURE INCREASED
     Dosage: 25 MG, UNK
     Route: 048
     Dates: start: 20010101
  3. PHARMATON [Concomitant]
     Indication: MEMORY IMPAIRMENT
     Dosage: 1 DF
     Dates: start: 20120201
  4. EXELON [Suspect]
     Indication: MEMORY IMPAIRMENT
     Dosage: 4.6 MG\24H HOURS
     Route: 062
     Dates: start: 20120301
  5. ATENOLOL [Concomitant]
     Dosage: 50 MG, UNK
     Route: 048
  6. VINPOCETINE [Concomitant]
     Indication: MEMORY IMPAIRMENT
     Dosage: 1 DF
     Dates: start: 20120201

REACTIONS (5)
  - FALL [None]
  - HYPERSENSITIVITY [None]
  - INTERVERTEBRAL DISC COMPRESSION [None]
  - PRURITUS [None]
  - ERYTHEMA [None]
